FAERS Safety Report 4946942-X (Version None)
Quarter: 2006Q1

REPORT INFORMATION
  Report Type: 
  Country: None (occurrence: None)
  Receive Date: 20060317
  Receipt Date: 20060303
  Transmission Date: 20060701
  Serious: Yes (Hospitalization)
  Sender: FDA-Public Use
  Company Number: US-ROCHE-439309

PATIENT
  Sex: Female

DRUGS (7)
  1. PEGASYS [Suspect]
     Indication: HEPATITIS C
     Dosage: STRENGTH REPORTED AS 180 MCG/0.5 ML.
     Route: 058
     Dates: start: 20051116
  2. PEGASYS [Suspect]
     Route: 058
  3. PEGASYS [Suspect]
     Route: 058
     Dates: end: 20060208
  4. RIBAVIRIN [Suspect]
     Indication: HEPATITIS C
     Route: 048
     Dates: start: 20051116
  5. PEG-INTRON [Suspect]
     Indication: HEPATITIS C
     Dosage: RECEIVED FIVE SHOTS. DOSE WAS REDUCED.
     Route: 058
     Dates: start: 20030214, end: 20030321
  6. REBETOL [Suspect]
     Indication: HEPATITIS C
     Route: 048
     Dates: start: 20030214, end: 20030321
  7. PREVACID [Concomitant]
     Route: 048

REACTIONS (5)
  - FEBRILE CONVULSION [None]
  - HEADACHE [None]
  - NEUTROPENIA [None]
  - PYREXIA [None]
  - TINNITUS [None]
